FAERS Safety Report 5273228-9 (Version None)
Quarter: 2007Q1

REPORT INFORMATION
  Report Type: 
  Country: None (occurrence: None)
  Receive Date: 20070322
  Receipt Date: 20070313
  Transmission Date: 20070707
  Serious: Yes (Other)
  Sender: FDA-Public Use
  Company Number: DE-MERCK-0701DEU00093

PATIENT
  Age: 57 Year
  Sex: Female
  Weight: 73 kg

DRUGS (8)
  1. FOSAMAX PLUS D [Suspect]
     Indication: OSTEOPOROSIS
     Route: 048
     Dates: start: 20070111
  2. IBANDRONATE SODIUM [Suspect]
     Indication: OSTEOPOROSIS
     Route: 048
     Dates: start: 20061101, end: 20070110
  3. BISOPROLOL FUMARATE [Concomitant]
     Indication: HYPERTENSION
     Route: 048
     Dates: start: 20030501
  4. TORSEMIDE [Concomitant]
     Indication: HYPERTENSION
     Route: 048
     Dates: start: 20040401
  5. OMEPRAZOLE [Concomitant]
     Indication: GASTRITIS
     Route: 048
  6. LERCANIDIPINE HYDROCHLORIDE [Concomitant]
     Indication: HYPERTENSION
     Route: 048
     Dates: start: 20061101
  7. [THERAPY UNSPECIFIED] [Concomitant]
     Indication: BREAST CANCER
     Route: 065
     Dates: start: 20051201
  8. FOSAMAX [Suspect]
     Indication: OSTEOPOROSIS
     Route: 048
     Dates: end: 20061101

REACTIONS (2)
  - OVERDOSE [None]
  - POLYMYALGIA RHEUMATICA [None]
